FAERS Safety Report 16778105 (Version 1)
Quarter: 2019Q3

REPORT INFORMATION
  Report Type: Spontaneous
  Country: CO (occurrence: CO)
  Receive Date: 20190905
  Receipt Date: 20190905
  Transmission Date: 20191005
  Serious: Yes (Death)
  Sender: FDA-Public Use
  Company Number: CO-009507513-1909COL001905

PATIENT
  Sex: Male

DRUGS (1)
  1. KEYTRUDA [Suspect]
     Active Substance: PEMBROLIZUMAB
     Indication: MALIGNANT MELANOMA

REACTIONS (5)
  - Multiple injuries [Fatal]
  - Traumatic haematoma [Fatal]
  - General physical health deterioration [Fatal]
  - Fall [Fatal]
  - Cardiac disorder [Fatal]
